FAERS Safety Report 13087763 (Version 1)
Quarter: 2017Q1

REPORT INFORMATION
  Report Type: Spontaneous
  Country: US (occurrence: US)
  Receive Date: 20170104
  Receipt Date: 20170104
  Transmission Date: 20170428
  Serious: Yes (Other)
  Sender: FDA-Public Use
  Company Number: None

PATIENT
  Age: 64 Year
  Sex: Female

DRUGS (14)
  1. LAMOTRIGINE. [Concomitant]
     Active Substance: LAMOTRIGINE
  2. PANTOPRAZOLE [Concomitant]
     Active Substance: PANTOPRAZOLE SODIUM
  3. ATORVASTATIN [Concomitant]
     Active Substance: ATORVASTATIN
  4. PROPRANOLOL [Concomitant]
     Active Substance: PROPRANOLOL HYDROCHLORIDE
  5. TECFIDERA [Concomitant]
     Active Substance: DIMETHYL FUMARATE
  6. PRIMIDONE. [Concomitant]
     Active Substance: PRIMIDONE
  7. OXYCODONE/APAP [Concomitant]
     Active Substance: ACETAMINOPHEN\OXYCODONE HYDROCHLORIDE
  8. MORPHINE [Concomitant]
     Active Substance: MORPHINE
  9. VARENICLINE [Concomitant]
     Active Substance: VARENICLINE
  10. ALBUTEROL. [Concomitant]
     Active Substance: ALBUTEROL
  11. TIZANIDINE. [Concomitant]
     Active Substance: TIZANIDINE
  12. AMPYRA [Suspect]
     Active Substance: DALFAMPRIDINE
     Indication: MULTIPLE SCLEROSIS
     Route: 048
     Dates: start: 20161213, end: 20161229
  13. TIOTROPIUM [Concomitant]
     Active Substance: TIOTROPIUM
  14. TRAZODONE [Concomitant]
     Active Substance: TRAZODONE HYDROCHLORIDE

REACTIONS (6)
  - Malaise [None]
  - Migraine [None]
  - Therapy cessation [None]
  - Asthenia [None]
  - Headache [None]
  - Nausea [None]

NARRATIVE: CASE EVENT DATE: 20170103
